FAERS Safety Report 16424752 (Version 2)
Quarter: 2019Q2

REPORT INFORMATION
  Report Type: Spontaneous
  Country: US (occurrence: US)
  Receive Date: 20190613
  Receipt Date: 20190621
  Transmission Date: 20190711
  Serious: No
  Sender: FDA-Public Use
  Company Number: US-PFIZER INC-2019245262

PATIENT
  Age: 66 Year
  Sex: Female
  Weight: 90.72 kg

DRUGS (2)
  1. ATORVASTATIN CALCIUM. [Suspect]
     Active Substance: ATORVASTATIN CALCIUM
     Indication: BLOOD CHOLESTEROL INCREASED
     Dosage: 80 MG, 1X/DAY (TWO 40 MG TABLETS PER DAY)
     Route: 048
     Dates: start: 201812
  2. ATORVASTATIN CALCIUM. [Suspect]
     Active Substance: ATORVASTATIN CALCIUM
     Indication: BLOOD TRIGLYCERIDES
     Dosage: 40 MG, UNK
     Dates: start: 2015

REACTIONS (2)
  - Product size issue [Unknown]
  - Computerised tomogram coronary artery abnormal [Unknown]
